FAERS Safety Report 25205036 (Version 3)
Quarter: 2025Q2

REPORT INFORMATION
  Report Type: Spontaneous
  Country: SE (occurrence: SE)
  Receive Date: 20250416
  Receipt Date: 20250501
  Transmission Date: 20250717
  Serious: Yes (Other)
  Sender: ABBVIE
  Company Number: SE-ABBVIE-6224288

PATIENT
  Age: 85 Year
  Sex: Male

DRUGS (4)
  1. OZURDEX [Suspect]
     Active Substance: DEXAMETHASONE
     Indication: Macular oedema
     Route: 031
     Dates: start: 20240626
  2. OZURDEX [Suspect]
     Active Substance: DEXAMETHASONE
     Route: 031
     Dates: start: 202409
  3. OZURDEX [Suspect]
     Active Substance: DEXAMETHASONE
     Route: 031
     Dates: start: 202403
  4. OZURDEX [Suspect]
     Active Substance: DEXAMETHASONE
     Route: 031
     Dates: start: 20241230

REACTIONS (4)
  - Posterior capsule opacification [Unknown]
  - Intraocular pressure increased [Unknown]
  - Visual impairment [Unknown]
  - Injection site reaction [Unknown]

NARRATIVE: CASE EVENT DATE: 20240401
